FAERS Safety Report 21513838 (Version 1)
Quarter: 2022Q4

REPORT INFORMATION
  Report Type: Spontaneous
  Country: CN (occurrence: CN)
  Receive Date: 20221027
  Receipt Date: 20221027
  Transmission Date: 20230113
  Serious: Yes (Hospitalization, Other)
  Sender: FDA-Public Use
  Company Number: CN-009507513-2210CHN008269

PATIENT
  Age: 59 Year
  Sex: Male

DRUGS (2)
  1. CILASTATIN SODIUM\IMIPENEM [Suspect]
     Active Substance: CILASTATIN SODIUM\IMIPENEM
     Indication: Anti-infective therapy
     Dosage: 1 G, Q8H
     Route: 041
     Dates: start: 20220916, end: 20220926
  2. DIISOPROPYLAMINE DICHLOROACETATE [Concomitant]
     Indication: Prophylaxis
     Dosage: 80 MILLIGRAM, QD
     Dates: start: 20220920, end: 20220926

REACTIONS (3)
  - Hepatic function abnormal [Recovering/Resolving]
  - Pneumonia [Unknown]
  - Lung neoplasm malignant [Unknown]

NARRATIVE: CASE EVENT DATE: 20220901
